FAERS Safety Report 14084830 (Version 1)
Quarter: 2017Q4

REPORT INFORMATION
  Report Type: Spontaneous
  Country: RU (occurrence: RU)
  Receive Date: 20171013
  Receipt Date: 20171013
  Transmission Date: 20180321
  Serious: Yes (Life-Threatening)
  Sender: FDA-Public Use
  Company Number: RU-ABBVIE-17P-251-2131025-00

PATIENT
  Age: 38 Year
  Sex: Male

DRUGS (1)
  1. DEPAKIN [Suspect]
     Active Substance: VALPROATE SODIUM
     Indication: PRODUCT USED FOR UNKNOWN INDICATION
     Dosage: EXTENDED RELEASE
     Route: 048

REACTIONS (1)
  - Epilepsy [Not Recovered/Not Resolved]
